FAERS Safety Report 9072858 (Version 4)
Quarter: 2013Q3

REPORT INFORMATION
  Report Type: Report from Study
  Country: CH (occurrence: CH)
  Receive Date: 20130207
  Receipt Date: 20130819
  Transmission Date: 20140515
  Serious: Yes (Death, Hospitalization, Other)
  Sender: FDA-Public Use
  Company Number: CH-ASTELLAS-2013US001377

PATIENT
  Age: 77 Year
  Sex: Male

DRUGS (5)
  1. ERLOTINIB TABLET [Suspect]
     Indication: LUNG NEOPLASM MALIGNANT
     Dosage: 50 MG, UID/QD
     Route: 048
     Dates: start: 20120703
  2. ERLOTINIB TABLET [Suspect]
     Dosage: 100 MG, UID/QD
     Route: 048
     Dates: start: 20121219
  3. ERLOTINIB TABLET [Suspect]
     Dosage: 50 MG, UNKNOWN/D
     Route: 048
     Dates: start: 20130109
  4. BEVACIZUMAB [Suspect]
     Indication: LUNG NEOPLASM MALIGNANT
     Dosage: 580 MG, UID/QD
     Route: 042
     Dates: start: 20120703
  5. VIDAZA [Suspect]
     Indication: PRODUCT USED FOR UNKNOWN INDICATION
     Dosage: 140 MG, UID/QD
     Route: 058
     Dates: start: 20130204

REACTIONS (3)
  - Acute myeloid leukaemia [Fatal]
  - Rash [Unknown]
  - Febrile neutropenia [Recovered/Resolved]
